FAERS Safety Report 7455776-6 (Version None)
Quarter: 2011Q2

REPORT INFORMATION
  Report Type: 
  Country: None (occurrence: None)
  Receive Date: 20110503
  Receipt Date: 20110429
  Transmission Date: 20111010
  Serious: Yes (Other)
  Sender: FDA-Public Use
  Company Number: DE-PFIZER INC-2011092426

PATIENT
  Age: 45 Year
  Sex: Male

DRUGS (2)
  1. ZOLOFT [Suspect]
     Dosage: 100 MG, DAILY
  2. ZOLOFT [Suspect]
     Dosage: 50 MG, DAILY
     Dates: start: 19980101

REACTIONS (2)
  - PENILE NEOPLASM [None]
  - LICHEN SCLEROSUS [None]
